FAERS Safety Report 4456323-3 (Version None)
Quarter: 2004Q3

REPORT INFORMATION
  Report Type: 
  Country: None (occurrence: None)
  Receive Date: 20040917
  Receipt Date: 20040903
  Transmission Date: 20050211
  Serious: No
  Sender: FDA-Public Use
  Company Number: 208845

PATIENT
  Age: 55 Year
  Sex: Female
  Weight: 65.8 kg

DRUGS (4)
  1. AVASTIN [Suspect]
     Indication: COLORECTAL CANCER
     Dosage: 334 MG, Q2W, INTRAVENOUS
     Route: 042
     Dates: start: 20031208
  2. FLUOROURACIL [Concomitant]
  3. LEUCOVORIN CALCIUM [Concomitant]
  4. OXALIPLATIN [Concomitant]

REACTIONS (1)
  - CORNEAL EROSION [None]
